FAERS Safety Report 14100272 (Version 4)
Quarter: 2019Q2

REPORT INFORMATION
  Report Type: Spontaneous
  Country: CA (occurrence: CA)
  Receive Date: 20171017
  Receipt Date: 20190626
  Transmission Date: 20190711
  Serious: Yes (Other)
  Sender: FDA-Public Use
  Company Number: CA-BEH-2017084400

PATIENT
  Age: 79 Year
  Sex: Male

DRUGS (23)
  1. SUFENTA [Suspect]
     Active Substance: SUFENTANIL CITRATE
     Dosage: UNK
     Route: 065
     Dates: start: 20170926
  2. TRANDATE [Suspect]
     Active Substance: LABETALOL HYDROCHLORIDE
     Dosage: UNK
     Route: 065
     Dates: start: 20170926
  3. HEPARIN [Suspect]
     Active Substance: HEPARIN SODIUM
     Dosage: UNK
     Route: 065
     Dates: start: 20170926
  4. LIDOCAINE. [Suspect]
     Active Substance: LIDOCAINE
     Dosage: UNK
     Route: 065
     Dates: start: 20170926
  5. SUFENTA [Suspect]
     Active Substance: SUFENTANIL CITRATE
     Dosage: UNK
     Route: 065
     Dates: start: 20170926
  6. HEPARIN [Suspect]
     Active Substance: HEPARIN SODIUM
     Dosage: UNK
     Route: 065
     Dates: start: 20170926
  7. ALBUREX [Suspect]
     Active Substance: ALBUMIN HUMAN
     Indication: PRODUCT USED FOR UNKNOWN INDICATION
     Dosage: 500 ML, SINGLE
     Route: 065
     Dates: start: 20170926, end: 20170926
  8. ROCURONIUM [Suspect]
     Active Substance: ROCURONIUM BROMIDE
     Dosage: UNK
     Route: 065
     Dates: start: 20170926
  9. ROCURONIUM [Suspect]
     Active Substance: ROCURONIUM BROMIDE
     Dosage: UNK
     Route: 065
     Dates: start: 20170926
  10. EPHEDRINE. [Suspect]
     Active Substance: EPHEDRINE
     Dosage: UNK
     Route: 065
     Dates: start: 20170926
  11. VERSED [Suspect]
     Active Substance: MIDAZOLAM HYDROCHLORIDE
     Dosage: UNK
     Route: 065
     Dates: start: 20170926
  12. SUFENTA [Suspect]
     Active Substance: SUFENTANIL CITRATE
     Dosage: UNK
     Route: 065
     Dates: start: 20170926
  13. PROPOFOL. [Suspect]
     Active Substance: PROPOFOL
     Dosage: UNK
     Route: 065
     Dates: start: 20170926
  14. ROCURONIUM [Suspect]
     Active Substance: ROCURONIUM BROMIDE
     Dosage: UNK
     Route: 065
     Dates: start: 20170926
  15. EPHEDRINE. [Suspect]
     Active Substance: EPHEDRINE
     Dosage: UNK
     Route: 065
     Dates: start: 20170926
  16. LIDOCAINE. [Suspect]
     Active Substance: LIDOCAINE
     Dosage: UNK
     Route: 065
     Dates: start: 20170926
  17. ROCURONIUM [Suspect]
     Active Substance: ROCURONIUM BROMIDE
     Dosage: UNK
     Route: 065
     Dates: start: 20170926
  18. LEVOPHED [Suspect]
     Active Substance: NOREPINEPHRINE BITARTRATE
     Dosage: UNK
     Route: 065
     Dates: start: 20170926
  19. CEFAZOLIN [Suspect]
     Active Substance: CEFAZOLIN
     Dosage: 3 G, UNK
     Route: 042
     Dates: start: 20170926
  20. SUFENTA [Suspect]
     Active Substance: SUFENTANIL CITRATE
     Dosage: UNK
     Route: 065
     Dates: start: 20170926
  21. RINGERS LACTATE [Suspect]
     Active Substance: CALCIUM CHLORIDE\POTASSIUM CHLORIDE\SODIUM LACTATE
     Dosage: 5300 ML, UNK
     Route: 065
     Dates: start: 20170926
  22. SUFENTA [Suspect]
     Active Substance: SUFENTANIL CITRATE
     Dosage: UNK
     Route: 065
     Dates: start: 20170926
  23. ROBINUL [Suspect]
     Active Substance: GLYCOPYRROLATE
     Dosage: UNK
     Route: 065
     Dates: start: 20170926

REACTIONS (6)
  - Haemodynamic instability [Recovered/Resolved]
  - Hypotension [Recovered/Resolved]
  - Dermatitis allergic [Recovered/Resolved]
  - Anaphylactic reaction [Recovered/Resolved]
  - Anaphylactic shock [Recovered/Resolved]
  - Tachycardia [Recovered/Resolved]

NARRATIVE: CASE EVENT DATE: 20170926
